FAERS Safety Report 4784158-0 (Version None)
Quarter: 2005Q3

REPORT INFORMATION
  Report Type: 
  Country: None (occurrence: None)
  Receive Date: 20050930
  Receipt Date: 20050810
  Transmission Date: 20060218
  Serious: No
  Sender: FDA-Public Use
  Company Number: US-GLAXOSMITHKLINE-A0569723A

PATIENT
  Age: 49 Year
  Sex: Female

DRUGS (2)
  1. FLOVENT [Suspect]
     Indication: ASTHMA
     Dosage: 2PUFF TWICE PER DAY
     Route: 055
     Dates: start: 20050804
  2. ALBUTEROL [Concomitant]

REACTIONS (6)
  - DYSPHONIA [None]
  - FATIGUE [None]
  - LYMPHADENOPATHY [None]
  - OVERDOSE [None]
  - PHARYNGEAL ERYTHEMA [None]
  - THROAT IRRITATION [None]
